FAERS Safety Report 21347362 (Version 1)
Quarter: 2022Q3

REPORT INFORMATION
  Report Type: Report from Study
  Country: CO (occurrence: CO)
  Receive Date: 20220919
  Receipt Date: 20220919
  Transmission Date: 20221026
  Serious: Yes (Other)
  Sender: FDA-Public Use
  Company Number: CO-BAYER-2022A129246

PATIENT
  Sex: Female

DRUGS (7)
  1. EYLEA [Suspect]
     Active Substance: AFLIBERCEPT
     Indication: Diabetic retinal oedema
     Dosage: 2 MG ONCE, LEFT EYE, SOLUTION FOR INJECTION, 40 MG/ML
     Route: 031
     Dates: start: 20210224, end: 20210224
  2. EYLEA [Suspect]
     Active Substance: AFLIBERCEPT
     Dosage: 2 MG ONCE, LEFT EYE, SOLUTION FOR INJECTION, 40 MG/ML
     Route: 031
     Dates: start: 20210325, end: 20210325
  3. EYLEA [Suspect]
     Active Substance: AFLIBERCEPT
     Dosage: 2 MG ONCE, LEFT EYE, SOLUTION FOR INJECTION, 40 MG/ML
     Route: 031
     Dates: start: 20210429, end: 20210429
  4. EYLEA [Suspect]
     Active Substance: AFLIBERCEPT
     Dosage: 2 MG ONCE, LEFT EYE, SOLUTION FOR INJECTION, 40 MG/ML
     Route: 031
     Dates: start: 20210807, end: 20210807
  5. EYLEA [Suspect]
     Active Substance: AFLIBERCEPT
     Dosage: 2 MG ONCE, LEFT EYE, SOLUTION FOR INJECTION, 40 MG/ML
     Route: 031
     Dates: start: 20211118, end: 20211118
  6. EYLEA [Suspect]
     Active Substance: AFLIBERCEPT
     Dosage: 2 MG ONCE, LEFT EYE, SOLUTION FOR INJECTION, 40 MG/ML
     Route: 031
     Dates: start: 20220325, end: 20220325
  7. EYLEA [Suspect]
     Active Substance: AFLIBERCEPT
     Dosage: 2 MG ONCE, LEFT EYE, SOLUTION FOR INJECTION, 40 MG/ML
     Route: 031
     Dates: start: 20220908, end: 20220908

REACTIONS (3)
  - Blindness unilateral [Not Recovered/Not Resolved]
  - Eye inflammation [Not Recovered/Not Resolved]
  - Eye pain [Not Recovered/Not Resolved]

NARRATIVE: CASE EVENT DATE: 20220908
